FAERS Safety Report 6523472-5 (Version None)
Quarter: 2009Q4

REPORT INFORMATION
  Report Type: 
  Country: None (occurrence: None)
  Receive Date: 20091231
  Receipt Date: 20091218
  Transmission Date: 20100525
  Serious: Yes (Hospitalization)
  Sender: FDA-Public Use
  Company Number: PHHY2009IE53234

PATIENT
  Sex: Female

DRUGS (4)
  1. CLOZARIL [Suspect]
     Indication: SCHIZOPHRENIA
     Dosage: 100 MG MANE / 325MG NOCTE
     Route: 048
     Dates: start: 20060929
  2. ELTROXIN [Concomitant]
     Dosage: 500 UG, UNK
     Route: 048
  3. PRIADEL [Concomitant]
     Dosage: 400 MG, UNK
     Route: 048
  4. EFFEXOR [Concomitant]
     Dosage: 150 MG, UNK
     Route: 048

REACTIONS (1)
  - CELLULITIS [None]
